FAERS Safety Report 5773685-5 (Version None)
Quarter: 2008Q2

REPORT INFORMATION
  Report Type: 
  Country: None (occurrence: None)
  Receive Date: 20080601
  Receipt Date: 20080326
  Transmission Date: 20081010
  Serious: No
  Sender: FDA-Public Use
  Company Number: US200803006238

PATIENT
  Age: 71 Year
  Sex: Female

DRUGS (1)
  1. BYETTA [Suspect]
     Indication: DIABETES MELLITUS
     Dosage: 10 UG, SUBCUTANEOUS ; 5 UG, DAILY (1/D), SUBCUTANEOUS
     Route: 058

REACTIONS (3)
  - INCORRECT DOSE ADMINISTERED [None]
  - NAUSEA [None]
  - VOMITING [None]
